FAERS Safety Report 22801662 (Version 3)
Quarter: 2023Q4

REPORT INFORMATION
  Report Type: Report from Study
  Country: TR (occurrence: None)
  Receive Date: 20230809
  Receipt Date: 20231102
  Transmission Date: 20240109
  Serious: Yes (Hospitalization)
  Sender: FDA-Public Use
  Company Number: 2023A157738

PATIENT
  Age: 63 Year
  Sex: Male

DRUGS (4)
  1. DURVALUMAB [Suspect]
     Active Substance: DURVALUMAB
     Indication: Papillary renal cell carcinoma
     Dosage: 1500.0MG ONCE/SINGLE ADMINISTRATION
     Route: 042
     Dates: start: 20230525, end: 20230525
  2. DURVALUMAB [Suspect]
     Active Substance: DURVALUMAB
     Indication: Papillary renal cell carcinoma
     Dosage: 1500.0MG ONCE/SINGLE ADMINISTRATION
     Route: 042
     Dates: start: 20230622, end: 20230622
  3. SAVOLITINIB [Suspect]
     Active Substance: SAVOLITINIB
     Indication: Papillary renal cell carcinoma
     Route: 048
     Dates: start: 20230525, end: 20230706
  4. ENTEKAVIR [Concomitant]
     Indication: Chronic hepatitis B
     Route: 048
     Dates: start: 20230214

REACTIONS (1)
  - Drug-induced liver injury [Recovering/Resolving]

NARRATIVE: CASE EVENT DATE: 20230706
